FAERS Safety Report 13031453 (Version 2)
Quarter: 2017Q1

REPORT INFORMATION
  Report Type: Spontaneous
  Country: GB (occurrence: GB)
  Receive Date: 20161215
  Receipt Date: 20170308
  Transmission Date: 20170428
  Serious: Yes (Hospitalization, Other)
  Sender: FDA-Public Use
  Company Number: GB-MYLANLABS-2016M1055753

PATIENT

DRUGS (3)
  1. HALOPERIDOL. [Suspect]
     Active Substance: HALOPERIDOL
     Indication: PSYCHOTIC DISORDER
     Dosage: UNK
     Route: 048
  2. DIAZEPAM. [Suspect]
     Active Substance: DIAZEPAM
     Indication: PSYCHOTIC DISORDER
     Dosage: UNK
     Route: 048
  3. ZOLPIDEM [Suspect]
     Active Substance: ZOLPIDEM\ZOLPIDEM TARTRATE
     Indication: PSYCHOTIC DISORDER
     Dosage: UNK

REACTIONS (5)
  - Hypothermia [Recovered/Resolved]
  - Hyporesponsive to stimuli [Unknown]
  - Sinus bradycardia [Recovered/Resolved]
  - Electrocardiogram J wave [Recovered/Resolved]
  - Electrocardiogram QT prolonged [Recovered/Resolved]
